FAERS Safety Report 9505207 (Version 1)
Quarter: 2013Q1

REPORT INFORMATION
  Report Type: Spontaneous
  Country: US (occurrence: None)
  Receive Date: 20130225
  Receipt Date: 20130225
  Transmission Date: 20140127
  Serious: Yes (Other)
  Sender: FDA-Public Use
  Company Number: 364082

PATIENT
  Age: 66 Year
  Sex: Female
  Weight: 62.6 kg

DRUGS (2)
  1. VICTOZA (LIRAGLUTIDE) SOLUTION FOR INJECTION, 6MG.ML [Suspect]
     Indication: TYPE 2 DIABETES MELLITUS
     Dosage: 0.6 MG. QD. SUBCUTANEOUS
     Dates: start: 20121105, end: 20121109
  2. GLYBURIDE /METFORMIN (GLIBENCLAMIDE, METFORMIN HYDROCHLORIDE) [Concomitant]

REACTIONS (1)
  - Pancreatitis [None]
